FAERS Safety Report 16335187 (Version 1)
Quarter: 2019Q2

REPORT INFORMATION
  Report Type: Spontaneous
  Country: US (occurrence: US)
  Receive Date: 20190412
  Receipt Date: 20190412
  Transmission Date: 20190711
  Serious: Yes (Hospitalization)
  Sender: FDA-Public Use
  Company Number: None

PATIENT
  Age: 66 Year
  Sex: Female

DRUGS (18)
  1. GABAPENTIN. [Concomitant]
     Active Substance: GABAPENTIN
  2. PREDNISONE. [Concomitant]
     Active Substance: PREDNISONE
  3. CYCLOSPORINE OPHT DROP [Concomitant]
  4. OXYCODONE [Concomitant]
     Active Substance: OXYCODONE
  5. ALBUTEROL NEB SOLN [Concomitant]
  6. CALCITONIN [Concomitant]
     Active Substance: CALCITONIN
  7. FUROSEMIDE. [Concomitant]
     Active Substance: FUROSEMIDE
  8. OYSTER SHELL CALCIUM [Concomitant]
     Active Substance: CALCIUM
  9. SILDENAFIL. [Concomitant]
     Active Substance: SILDENAFIL
  10. POTASSIUM CHLORIDE. [Concomitant]
     Active Substance: POTASSIUM CHLORIDE
  11. DOXYCYCLINE. [Concomitant]
     Active Substance: DOXYCYCLINE
  12. LETAIRIS [Suspect]
     Active Substance: AMBRISENTAN
     Indication: PULMONARY ARTERIAL HYPERTENSION
     Route: 048
     Dates: start: 201007
  13. MORPHINE [Concomitant]
     Active Substance: MORPHINE
  14. CLOTRIMAZOLE. [Concomitant]
     Active Substance: CLOTRIMAZOLE
  15. HYDROXYCHLOROQUINE [Concomitant]
     Active Substance: HYDROXYCHLOROQUINE
  16. WARFARIN [Concomitant]
     Active Substance: WARFARIN
  17. FOSAMAX [Concomitant]
     Active Substance: ALENDRONATE SODIUM
  18. IMITREX [Concomitant]
     Active Substance: SUMATRIPTAN SUCCINATE

REACTIONS (1)
  - Condition aggravated [None]

NARRATIVE: CASE EVENT DATE: 20190331
